FAERS Safety Report 24155211 (Version 2)
Quarter: 2024Q3

REPORT INFORMATION
  Report Type: Spontaneous
  Country: US (occurrence: US)
  Receive Date: 20240731
  Receipt Date: 20240806
  Transmission Date: 20241017
  Serious: No
  Sender: PAREXEL
  Company Number: US-SECURA BIO, INC.-2024-SECUR-US000052

PATIENT

DRUGS (2)
  1. COPIKTRA [Suspect]
     Active Substance: DUVELISIB
     Indication: Anaplastic large cell lymphoma T- and null-cell types
     Dosage: 75 MG, BID
     Route: 048
  2. COPIKTRA [Suspect]
     Active Substance: DUVELISIB
     Dosage: 25 MG, BID
     Route: 048

REACTIONS (4)
  - Rectal haemorrhage [Not Recovered/Not Resolved]
  - Rectal tenesmus [Not Recovered/Not Resolved]
  - Off label use [Unknown]
  - Product use in unapproved indication [Unknown]
